FAERS Safety Report 22335410 (Version 3)
Quarter: 2023Q2

REPORT INFORMATION
  Report Type: Report from Study
  Country: US (occurrence: US)
  Receive Date: 20230518
  Receipt Date: 20230522
  Transmission Date: 20230722
  Serious: Yes (Other)
  Sender: FDA-Public Use
  Company Number: US-ABBVIE-4769827

PATIENT
  Age: 42 Year
  Sex: Female

DRUGS (1)
  1. DIVALPROEX SODIUM [Suspect]
     Active Substance: DIVALPROEX SODIUM
     Indication: Epilepsy
     Dosage: 3 TABLETS IN THE MORNING AND EVENING   ER   STRENGTH: 500 MILLIGRAM??FIRST ADMIN DATE?16 MAY 2023
     Route: 048

REACTIONS (3)
  - Petit mal epilepsy [Recovered/Resolved]
  - Excessive eye blinking [Unknown]
  - Cold sweat [Unknown]

NARRATIVE: CASE EVENT DATE: 20230501
